FAERS Safety Report 4536405-8 (Version None)
Quarter: 2004Q4

REPORT INFORMATION
  Report Type: 
  Country: None (occurrence: None)
  Receive Date: 20041223
  Receipt Date: 20040920
  Transmission Date: 20050328
  Serious: No
  Sender: FDA-Public Use
  Company Number: US-GLAXOSMITHKLINE-A0526991A

PATIENT
  Age: 45 Year
  Sex: Female

DRUGS (6)
  1. FLONASE [Suspect]
     Indication: ILL-DEFINED DISORDER
     Route: 045
  2. BENADRYL [Concomitant]
     Dates: start: 20040831
  3. SERZONE [Concomitant]
     Dates: start: 20040831
  4. KLONOPIN [Concomitant]
     Dates: start: 20040831
  5. FLONASE [Concomitant]
     Dates: start: 20040831
  6. VISICOL [Concomitant]
     Dosage: 20TAB SINGLE DOSE
     Dates: start: 20040831

REACTIONS (2)
  - HYPOAESTHESIA [None]
  - LOCAL SWELLING [None]
